FAERS Safety Report 22297991 (Version 1)
Quarter: 2023Q2

REPORT INFORMATION
  Report Type: Report from Study
  Country: US (occurrence: US)
  Receive Date: 20230509
  Receipt Date: 20230509
  Transmission Date: 20230721
  Serious: Yes (Other)
  Sender: FDA-Public Use
  Company Number: US-UCBSA-2023022074

PATIENT
  Sex: Female

DRUGS (1)
  1. CERTOLIZUMAB PEGOL [Suspect]
     Active Substance: CERTOLIZUMAB PEGOL
     Indication: Product used for unknown indication
     Dosage: UNK

REACTIONS (5)
  - Cholestasis [Unknown]
  - Illness [Unknown]
  - Pharyngitis streptococcal [Unknown]
  - Maternal exposure during pregnancy [Unknown]
  - Therapy cessation [Unknown]
